FAERS Safety Report 5531676-3 (Version None)
Quarter: 2007Q4

REPORT INFORMATION
  Report Type: 
  Country: None (occurrence: None)
  Receive Date: 20071128
  Receipt Date: 20071119
  Transmission Date: 20080405
  Serious: Yes (Other)
  Sender: FDA-Public Use
  Company Number: 2007SP022227

PATIENT
  Age: 76 Year
  Sex: Female

DRUGS (5)
  1. NASONEX [Suspect]
     Indication: RHINITIS
     Dosage: 1 DF; BID; NAS
     Route: 045
     Dates: start: 20071026, end: 20071026
  2. AMOXICILLIN [Concomitant]
  3. BENDROFLUMETHIAZIDE [Concomitant]
  4. DOXYCYCLINE [Concomitant]
  5. TEMAZEPAM [Concomitant]

REACTIONS (4)
  - HYPERSENSITIVITY [None]
  - NASAL DISCOMFORT [None]
  - OESOPHAGEAL PAIN [None]
  - THROAT IRRITATION [None]
